FAERS Safety Report 7293002-1 (Version None)
Quarter: 2011Q1

REPORT INFORMATION
  Report Type: 
  Country: None (occurrence: None)
  Receive Date: 20110209
  Receipt Date: 20110209
  Transmission Date: 20110831
  Serious: No
  Sender: FDA-Public Use
  Company Number: None

PATIENT
  Sex: Female
  Weight: 56.6996 kg

DRUGS (1)
  1. CREST W/ FLUORISTAN [Suspect]
     Indication: GINGIVITIS
     Dates: start: 20110201, end: 20110205

REACTIONS (1)
  - DYSGEUSIA [None]
